FAERS Safety Report 4498651-1 (Version None)
Quarter: 2004Q3

REPORT INFORMATION
  Report Type: 
  Country: None (occurrence: None)
  Receive Date: 20040927
  Receipt Date: 20040615
  Transmission Date: 20050211
  Serious: No
  Sender: FDA-Public Use
  Company Number: USA040670208

PATIENT
  Sex: Female

DRUGS (2)
  1. STRATTERA [Suspect]
     Indication: DISTURBANCE IN ATTENTION
     Dosage: 40 MG AS NEEDED
  2. IMITREX [Concomitant]

REACTIONS (3)
  - ALCOHOL POISONING [None]
  - CONFUSIONAL STATE [None]
  - MIGRAINE [None]
